FAERS Safety Report 21709473 (Version 1)
Quarter: 2022Q4

REPORT INFORMATION
  Report Type: Spontaneous
  Country: IT (occurrence: None)
  Receive Date: 20221210
  Receipt Date: 20221210
  Transmission Date: 20230113
  Serious: Yes (Death)
  Sender: FDA-Public Use
  Company Number: 2022A399494

PATIENT
  Age: 76 Year
  Sex: Female

DRUGS (12)
  1. EVUSHELD [Suspect]
     Active Substance: CILGAVIMAB\TIXAGEVIMAB
     Indication: COVID-19 prophylaxis
     Dosage: 300 MG (TIXAGEVIMAB/CILGAVIMAB)300.0MG UNKNOWN
     Route: 030
     Dates: start: 20221025, end: 20221025
  2. CYANOCOBALAMIN\PYRIDOXINE\THIAMINE [Concomitant]
     Active Substance: CYANOCOBALAMIN\PYRIDOXINE\THIAMINE
     Dosage: 1 CP EVERY 24H
     Route: 048
  3. ALLOPURINOL [Concomitant]
     Active Substance: ALLOPURINOL
     Dosage: 300 MG EVERY 24H
     Route: 048
  4. CALCIJEX [Concomitant]
     Active Substance: CALCITRIOL
     Dosage: 0.25 MCG EVERY 24H0.25UG/INHAL DAILY
     Route: 055
  5. ACETAMINOPHEN\OXYCODONE HYDROCHLORIDE [Concomitant]
     Active Substance: ACETAMINOPHEN\OXYCODONE HYDROCHLORIDE
     Dosage: HALF TABLET OF 5+325 MG EVERY 12 HOURS
     Route: 048
  6. ZOLEDRONIC ACID [Concomitant]
     Active Substance: ZOLEDRONIC ACID
     Dosage: UNKNOWN
     Route: 065
  7. ACYCLOVIR [Concomitant]
     Active Substance: ACYCLOVIR
     Dosage: 400MG EVERY 12H
     Route: 048
  8. LENALIDOMIDE [Concomitant]
     Active Substance: LENALIDOMIDE
     Indication: Plasma cell myeloma
     Dosage: 25 MG EVERY 24H
     Route: 048
     Dates: start: 20220713, end: 20221025
  9. CALCIO CARBONATO [Concomitant]
     Dosage: 1 G EVERY 12H
     Route: 048
  10. DEXAMETHASONE [Concomitant]
     Active Substance: DEXAMETHASONE
     Indication: Plasma cell myeloma
     Dosage: 20MG EVERY 7 DAYS
     Route: 048
     Dates: start: 20220713, end: 20221020
  11. DARZALEX [Concomitant]
     Active Substance: DARATUMUMAB
     Indication: Plasma cell myeloma
     Dosage: 1800 MG EVERY 7 DAYS FOR CYCLES 1 AND 2, THEN SWITCH TO 1800MG EVERY 14 DAYS
     Route: 058
     Dates: start: 20220713, end: 20221020
  12. ENOXAPARIN SODIUM [Concomitant]
     Active Substance: ENOXAPARIN SODIUM
     Indication: Thrombosis prophylaxis
     Dosage: 4000 UI EVERY 24H
     Route: 058
     Dates: start: 20221006, end: 20221025

REACTIONS (1)
  - Cerebral haemorrhage [Fatal]

NARRATIVE: CASE EVENT DATE: 20221026
